FAERS Safety Report 7314831-1 (Version None)
Quarter: 2011Q1

REPORT INFORMATION
  Report Type: 
  Country: None (occurrence: None)
  Receive Date: 20110225
  Receipt Date: 20110114
  Transmission Date: 20110831
  Serious: No
  Sender: FDA-Public Use
  Company Number: US-MYLANLABS-2010S1023797

PATIENT
  Age: 17 Year
  Sex: Male
  Weight: 91.63 kg

DRUGS (4)
  1. AMNESTEEM [Suspect]
     Indication: ACNE CYSTIC
     Dates: start: 20100920, end: 20101101
  2. AMNESTEEM [Suspect]
     Indication: ACNE
     Dates: start: 20100920, end: 20101101
  3. AMNESTEEM [Suspect]
     Dates: start: 20101101
  4. AMNESTEEM [Suspect]
     Dates: start: 20101101

REACTIONS (2)
  - BLOOD CHOLESTEROL INCREASED [None]
  - BLOOD TRIGLYCERIDES INCREASED [None]
